FAERS Safety Report 5709078-6 (Version None)
Quarter: 2008Q2

REPORT INFORMATION
  Report Type: 
  Country: None (occurrence: None)
  Receive Date: 20080418
  Receipt Date: 20080409
  Transmission Date: 20081010
  Serious: Yes (Other)
  Sender: FDA-Public Use
  Company Number: US-JNJFOC-20080403410

PATIENT
  Sex: Female
  Weight: 68.04 kg

DRUGS (5)
  1. DURAGESIC-100 [Suspect]
     Indication: PAIN
     Route: 062
  2. LOPRESSOR [Concomitant]
     Indication: BLOOD PRESSURE
     Route: 048
  3. PROMETHAZINE [Concomitant]
     Indication: NAUSEA
     Route: 048
  4. PRAVASTATIN SODIUM [Concomitant]
     Indication: BLOOD CHOLESTEROL
     Route: 048
  5. PEROXETINE [Concomitant]
     Indication: NERVOUSNESS
     Route: 048

REACTIONS (3)
  - ANXIETY [None]
  - PARKINSON'S DISEASE [None]
  - WRONG TECHNIQUE IN DRUG USAGE PROCESS [None]
